FAERS Safety Report 16757720 (Version 4)
Quarter: 2022Q1

REPORT INFORMATION
  Report Type: Other
  Country: IT (occurrence: None)
  Receive Date: 20190830
  Receipt Date: 20220107
  Transmission Date: 20220423
  Serious: Yes (Other)
  Sender: FDA-Public Use
  Company Number: IT-ROCHE-2390345

PATIENT

DRUGS (6)
  1. RITUXIMAB [Suspect]
     Active Substance: RITUXIMAB
     Indication: Chronic lymphocytic leukaemia recurrent
     Dosage: 375 OR 500 MG/M2; ON DAY 1 OF EACH 28 DAY CYCLE
     Route: 041
  2. RITUXIMAB [Suspect]
     Active Substance: RITUXIMAB
     Indication: Chronic lymphocytic leukaemia refractory
  3. IDELALISIB [Suspect]
     Active Substance: IDELALISIB
     Indication: Chronic lymphocytic leukaemia recurrent
     Route: 048
  4. IDELALISIB [Suspect]
     Active Substance: IDELALISIB
     Indication: Chronic lymphocytic leukaemia refractory
  5. BENDAMUSTINE [Suspect]
     Active Substance: BENDAMUSTINE
     Indication: Chronic lymphocytic leukaemia recurrent
     Dosage: ON DAY 1 AND 2 OF EACH 28 DAY CYCLE
     Route: 042
  6. BENDAMUSTINE [Suspect]
     Active Substance: BENDAMUSTINE
     Indication: Chronic lymphocytic leukaemia refractory

REACTIONS (58)
  - Neutropenia [Unknown]
  - Pseudomonas infection [Unknown]
  - Herpes virus infection [Unknown]
  - Hepatitis E [Unknown]
  - Cytomegalovirus viraemia [Unknown]
  - Herpes zoster [Unknown]
  - Gastroenteritis viral [Unknown]
  - Diverticulitis [Unknown]
  - Pseudomonal sepsis [Unknown]
  - Pneumonia pseudomonal [Unknown]
  - Pneumonia legionella [Unknown]
  - Pneumonia haemophilus [Unknown]
  - Lower respiratory tract infection [Unknown]
  - Cardiopulmonary failure [Unknown]
  - Cardiac failure chronic [Unknown]
  - Myocarditis infectious [Unknown]
  - Atrial flutter [Unknown]
  - Hepatotoxicity [Unknown]
  - Gastric neoplasm [Unknown]
  - Cardiac failure acute [Unknown]
  - Urosepsis [Unknown]
  - Septic shock [Unknown]
  - Tumour haemorrhage [Unknown]
  - Blood loss anaemia [Unknown]
  - Haematuria [Unknown]
  - Immune thrombocytopenia [Unknown]
  - Pneumonia pneumococcal [Unknown]
  - Pneumocystis jirovecii pneumonia [Unknown]
  - Interstitial lung disease [Unknown]
  - Enterocolitis [Unknown]
  - Cytomegalovirus infection [Unknown]
  - Colitis [Unknown]
  - Clostridium difficile colitis [Unknown]
  - Pyrexia [Unknown]
  - Influenza [Unknown]
  - Femur fracture [Unknown]
  - Chest pain [Unknown]
  - Urinary tract infection [Unknown]
  - Spinal compression fracture [Unknown]
  - Bronchitis [Unknown]
  - Pneumonitis [Unknown]
  - Cardiomyopathy [Unknown]
  - Respiratory tract infection [Unknown]
  - Dyspnoea [Unknown]
  - Pneumonia [Unknown]
  - Neoplasm malignant [Unknown]
  - Infection [Unknown]
  - Gastrointestinal haemorrhage [Unknown]
  - Atrial fibrillation [Unknown]
  - Diarrhoea [Unknown]
  - Constipation [Unknown]
  - Anaemia [Unknown]
  - Tumour lysis syndrome [Unknown]
  - Upper respiratory tract infection [Unknown]
  - Cough [Unknown]
  - Fatigue [Unknown]
  - Nausea [Unknown]
  - Infusion related reaction [Unknown]
